FAERS Safety Report 12421823 (Version 12)
Quarter: 2018Q2

REPORT INFORMATION
  Report Type: Report from Study
  Country: GB (occurrence: GB)
  Receive Date: 20160531
  Receipt Date: 20180523
  Transmission Date: 20180711
  Serious: Yes (Other)
  Sender: FDA-Public Use
  Company Number: GB-ROCHE-1619253

PATIENT
  Age: 71 Year
  Sex: Male

DRUGS (4)
  1. ESBRIET [Suspect]
     Active Substance: PIRFENIDONE
     Indication: IDIOPATHIC PULMONARY FIBROSIS
     Route: 048
     Dates: start: 20130311
  2. WARFARIN [Concomitant]
     Active Substance: WARFARIN
     Route: 065
  3. OXYGEN. [Concomitant]
     Active Substance: OXYGEN
  4. OXYBUTYNIN HYDROCHLORIDE [Concomitant]
     Active Substance: OXYBUTYNIN CHLORIDE

REACTIONS (21)
  - Chest injury [Unknown]
  - Disease progression [Not Recovered/Not Resolved]
  - Productive cough [Not Recovered/Not Resolved]
  - Nausea [Unknown]
  - Fatigue [Unknown]
  - Chest pain [Unknown]
  - Listless [Unknown]
  - Tooth fracture [Unknown]
  - Tooth disorder [Unknown]
  - Tooth abscess [Unknown]
  - Photophobia [Not Recovered/Not Resolved]
  - Gastric disorder [Recovered/Resolved]
  - Cough [Not Recovered/Not Resolved]
  - Nasopharyngitis [Unknown]
  - Frustration tolerance decreased [Unknown]
  - Tanning [Unknown]
  - Drug ineffective [Unknown]
  - Dyspnoea [Unknown]
  - Abdominal discomfort [Unknown]
  - Dyspepsia [Unknown]
  - Product outer packaging issue [Unknown]

NARRATIVE: CASE EVENT DATE: 2015
